FAERS Safety Report 6796143-8 (Version None)
Quarter: 2010Q2

REPORT INFORMATION
  Report Type: 
  Country: None (occurrence: None)
  Receive Date: 20100625
  Receipt Date: 20100614
  Transmission Date: 20101027
  Serious: Yes (Hospitalization)
  Sender: FDA-Public Use
  Company Number: GB-ELI_LILLY_AND_COMPANY-GB201006003467

PATIENT
  Sex: Female
  Weight: 63 kg

DRUGS (8)
  1. PEMETREXED [Suspect]
     Indication: NON-SMALL CELL LUNG CANCER
     Dosage: 500 MG/M2, DAY 1 EVERY 21 DAYS
     Route: 042
  2. CISPLATIN [Suspect]
     Indication: NON-SMALL CELL LUNG CANCER
     Dosage: 75 MG/M2, DAY 1 EVERY 21 DAYS
     Route: 042
  3. PEMETREXED [Suspect]
     Dosage: UNK, ON DAY ONE EVERY 21 DAYS
     Route: 042
     Dates: start: 20100607
  4. FOLIC ACID [Concomitant]
     Indication: PROPHYLAXIS
     Dates: start: 20100104
  5. VITAMIN B-12 [Concomitant]
     Indication: PROPHYLAXIS
     Dates: start: 20100113
  6. DEXAMETHASONE [Concomitant]
     Indication: PROPHYLAXIS
     Dates: start: 20100118
  7. INDAPAMIDE [Concomitant]
     Indication: HYPERTENSION
     Dosage: 1.5 MG, UNK
     Dates: start: 20000101
  8. VALSARTAN [Concomitant]
     Indication: HYPERTENSION
     Dosage: 80 MG, UNK
     Dates: start: 20000101

REACTIONS (2)
  - HEADACHE [None]
  - VOMITING [None]
